FAERS Safety Report 8853450 (Version 6)
Quarter: 2015Q2

REPORT INFORMATION
  Report Type: Report from Study
  Country: JP (occurrence: JP)
  Receive Date: 20121022
  Receipt Date: 20150528
  Transmission Date: 20150821
  Serious: Yes (Other)
  Sender: FDA-Public Use
  Company Number: JP-GLAXOSMITHKLINE-B0838955A

PATIENT
  Age: 70 Year
  Sex: Male
  Weight: 53 kg

DRUGS (39)
  1. FOSCAVIR [Suspect]
     Active Substance: FOSCARNET SODIUM
     Route: 041
     Dates: start: 20121012, end: 20121014
  2. LOXOPROFEN [Concomitant]
     Active Substance: LOXOPROFEN
     Route: 048
     Dates: start: 20120805, end: 20120805
  3. LOXOPROFEN [Concomitant]
     Active Substance: LOXOPROFEN
     Route: 048
     Dates: start: 20120821, end: 20120821
  4. LOXOPROFEN [Concomitant]
     Active Substance: LOXOPROFEN
     Route: 048
     Dates: start: 20120901, end: 20120901
  5. LOXOPROFEN [Concomitant]
     Active Substance: LOXOPROFEN
     Route: 048
     Dates: start: 20121009, end: 20121009
  6. LOXOPROFEN [Concomitant]
     Active Substance: LOXOPROFEN
     Route: 048
     Dates: start: 20121011, end: 20121011
  7. PREDONINE [Concomitant]
     Active Substance: PREDNISOLONE\PREDNISOLONE ACETATE\PREDNISOLONE SODIUM SUCCINATE
     Route: 048
     Dates: start: 20120726, end: 20120730
  8. ATOVAQUONE. [Suspect]
     Active Substance: ATOVAQUONE
     Dosage: 750 MG, QD
     Route: 048
     Dates: start: 20120928, end: 20121013
  9. CYLOCIDE [Suspect]
     Active Substance: CYTARABINE
     Route: 042
     Dates: start: 20120625, end: 20120629
  10. LOXOPROFEN [Concomitant]
     Active Substance: LOXOPROFEN
     Route: 048
     Dates: start: 20120823, end: 20120823
  11. PRIMPERAN [Concomitant]
     Active Substance: METOCLOPRAMIDE HYDROCHLORIDE
     Route: 048
     Dates: start: 20120729, end: 20120729
  12. MEROPEN [Concomitant]
     Active Substance: MEROPENEM
     Route: 041
     Dates: start: 20121006, end: 20121014
  13. OMEPRAL [Concomitant]
     Active Substance: OMEPRAZOLE
     Route: 048
     Dates: start: 20120625, end: 20121013
  14. LOXOPROFEN [Concomitant]
     Active Substance: LOXOPROFEN
     Route: 048
     Dates: start: 20120807, end: 20120808
  15. LOXOPROFEN [Concomitant]
     Active Substance: LOXOPROFEN
     Route: 048
     Dates: start: 20120903, end: 20120903
  16. MAGMITT [Concomitant]
     Active Substance: MAGNESIUM OXIDE
     Route: 048
     Dates: start: 20120727, end: 20121004
  17. NIPOLAZIN [Concomitant]
     Route: 048
     Dates: start: 20120806, end: 20120806
  18. VFEND [Concomitant]
     Active Substance: VORICONAZOLE
     Route: 048
     Dates: start: 20120912, end: 20120912
  19. ATOVAQUONE. [Suspect]
     Active Substance: ATOVAQUONE
     Indication: ANTIFUNGAL PROPHYLAXIS
     Dosage: 1500 MG, QD
     Route: 048
     Dates: start: 20120713, end: 20120719
  20. CRAVIT [Suspect]
     Active Substance: LEVOFLOXACIN
     Route: 048
     Dates: start: 20120808, end: 20120811
  21. EMEND [Concomitant]
     Active Substance: APREPITANT
     Route: 048
     Dates: start: 20120726, end: 20120726
  22. NIPOLAZIN [Concomitant]
     Route: 048
     Dates: start: 20120731, end: 20120731
  23. LOXOPROFEN [Concomitant]
     Active Substance: LOXOPROFEN
     Route: 048
     Dates: start: 20120718, end: 20120718
  24. VFEND [Concomitant]
     Active Substance: VORICONAZOLE
     Route: 048
     Dates: start: 20120913, end: 20121010
  25. NIPOLAZIN [Concomitant]
     Route: 048
     Dates: start: 20120817, end: 20120817
  26. DAUNORUBICIN HYDROCHLORIDE. [Concomitant]
     Active Substance: DAUNORUBICIN HYDROCHLORIDE
     Indication: ACUTE MYELOID LEUKAEMIA
     Route: 042
     Dates: start: 20120522, end: 20120526
  27. ATOVAQUONE. [Suspect]
     Active Substance: ATOVAQUONE
     Dosage: 1500 MG, QD
     Route: 048
     Dates: start: 20120725, end: 20120913
  28. PRIMPERAN [Concomitant]
     Active Substance: METOCLOPRAMIDE HYDROCHLORIDE
     Route: 048
     Dates: start: 20120902, end: 20120902
  29. NIPOLAZIN [Concomitant]
     Route: 048
     Dates: start: 20120729, end: 20120729
  30. MITOXANTRONE HYDROCHLORIDE. [Concomitant]
     Active Substance: MITOXANTRONE HYDROCHLORIDE
     Indication: ACUTE MYELOID LEUKAEMIA
     Route: 042
     Dates: start: 20120625, end: 20120627
  31. FLUCONAZOLE. [Suspect]
     Active Substance: FLUCONAZOLE
     Route: 048
     Dates: start: 20120906, end: 20120911
  32. CYLOCIDE [Suspect]
     Active Substance: CYTARABINE
     Indication: ACUTE MYELOID LEUKAEMIA
     Route: 042
     Dates: start: 20120522, end: 20120528
  33. LOXOPROFEN [Concomitant]
     Active Substance: LOXOPROFEN
     Route: 048
     Dates: start: 20120806, end: 20120806
  34. LOXOPROFEN [Concomitant]
     Active Substance: LOXOPROFEN
     Route: 048
     Dates: start: 20121004, end: 20121008
  35. LOXOPROFEN [Concomitant]
     Active Substance: LOXOPROFEN
     Route: 048
     Dates: start: 20121010, end: 20121010
  36. EMEND [Concomitant]
     Active Substance: APREPITANT
     Route: 048
     Dates: start: 20120727, end: 20120728
  37. PRIMPERAN [Concomitant]
     Active Substance: METOCLOPRAMIDE HYDROCHLORIDE
     Route: 048
     Dates: start: 20120731, end: 20120731
  38. PRIMPERAN [Concomitant]
     Active Substance: METOCLOPRAMIDE HYDROCHLORIDE
     Route: 048
     Dates: start: 20120901, end: 20120901
  39. NIPOLAZIN [Concomitant]
     Route: 048
     Dates: start: 20120813, end: 20120813

REACTIONS (5)
  - Azotaemia [Not Recovered/Not Resolved]
  - Hypoalbuminaemia [Not Recovered/Not Resolved]
  - Hypercreatininaemia [Not Recovered/Not Resolved]
  - Renal impairment [Recovered/Resolved]
  - Stomatitis [Recovered/Resolved]

NARRATIVE: CASE EVENT DATE: 20120820
